FAERS Safety Report 10912624 (Version 1)
Quarter: 2015Q1

REPORT INFORMATION
  Report Type: Spontaneous
  Country: GB (occurrence: None)
  Receive Date: 20150310
  Receipt Date: 20150310
  Transmission Date: 20150721
  Serious: Yes (Hospitalization)
  Sender: FDA-Public Use
  Company Number: 20150603

PATIENT
  Age: 34 Year
  Sex: Male

DRUGS (1)
  1. METOJECT PEN (METHOTREXATE DISODIUM) [Suspect]
     Active Substance: METHOTREXATE SODIUM
     Dosage: 25MG/0.50ML?

REACTIONS (2)
  - Intervertebral disc protrusion [None]
  - Fall [None]

NARRATIVE: CASE EVENT DATE: 20150226
